FAERS Safety Report 22331154 (Version 2)
Quarter: 2023Q2

REPORT INFORMATION
  Report Type: Other
  Country: GB (occurrence: GB)
  Receive Date: 20230517
  Receipt Date: 20230519
  Transmission Date: 20230721
  Serious: Yes (Hospitalization, Other)
  Sender: FDA-Public Use
  Company Number: GB-MHRA-MED-202301061133145260-MJCLW

PATIENT
  Age: 76 Year
  Sex: Male

DRUGS (7)
  1. MIRABEGRON [Suspect]
     Active Substance: MIRABEGRON
     Indication: Benign prostatic hyperplasia
     Route: 065
     Dates: start: 20221221, end: 20221224
  2. TAMSULOSIN [Concomitant]
     Active Substance: TAMSULOSIN
     Indication: Benign prostatic hyperplasia
     Dosage: UNK UNK, UNKNOWN FREQ.
     Route: 065
     Dates: start: 2012
  3. ATORVASTATIN [Concomitant]
     Active Substance: ATORVASTATIN
     Indication: Hypercholesterolaemia
     Dosage: UNK UNK, UNKNOWN FREQ.
     Route: 065
  4. CLOPIDOGREL [Concomitant]
     Active Substance: CLOPIDOGREL BISULFATE
     Indication: Anticoagulant therapy
     Dosage: UNK UNK, UNKNOWN FREQ.
     Route: 065
  5. METFORMIN [Concomitant]
     Active Substance: METFORMIN HYDROCHLORIDE
     Indication: Diabetes mellitus
     Dosage: UNK UNK, UNKNOWN FREQ.
     Route: 065
  6. OMEPRAZOLE [Concomitant]
     Active Substance: OMEPRAZOLE
     Indication: Product used for unknown indication
     Dosage: UNK UNK, UNKNOWN FREQ.
     Route: 065
  7. ASPIRIN [Concomitant]
     Active Substance: ASPIRIN
     Indication: Product used for unknown indication
     Route: 065

REACTIONS (7)
  - Heart rate increased [Recovered/Resolved]
  - Headache [Recovering/Resolving]
  - Transient global amnesia [Not Recovered/Not Resolved]
  - Abnormal behaviour [Recovering/Resolving]
  - Blood pressure increased [Recovering/Resolving]
  - Confusional state [Recovering/Resolving]
  - Off label use [Unknown]

NARRATIVE: CASE EVENT DATE: 20221222
